FAERS Safety Report 10644414 (Version 3)
Quarter: 2015Q1

REPORT INFORMATION
  Report Type: Spontaneous
  Country: BE (occurrence: BE)
  Receive Date: 20141210
  Receipt Date: 20150212
  Transmission Date: 20150720
  Serious: Yes (Death, Hospitalization, Other)
  Sender: FDA-Public Use
  Company Number: BE-GLAXOSMITHKLINE-BE2014GSK032030

PATIENT
  Age: 4 Month

DRUGS (4)
  1. RESPIRATORY PHYSIOTHERAPY [Concomitant]
  2. VENTOLIN [Suspect]
     Active Substance: ALBUTEROL SULFATE
     Indication: PRODUCT USED FOR UNKNOWN INDICATION
     Route: 055
  3. ATROVENT [Suspect]
     Active Substance: IPRATROPIUM BROMIDE
     Indication: PRODUCT USED FOR UNKNOWN INDICATION
     Route: 055
  4. ATROVENT [Suspect]
     Active Substance: IPRATROPIUM BROMIDE
     Route: 055

REACTIONS (5)
  - Ill-defined disorder [Unknown]
  - Death [Fatal]
  - Cardiac arrest [Fatal]
  - Coma [Unknown]
  - Somnolence [Unknown]
